FAERS Safety Report 5205833-X (Version None)
Quarter: 2007Q1

REPORT INFORMATION
  Report Type: 
  Country: None (occurrence: None)
  Receive Date: 20070105
  Receipt Date: 20070105
  Transmission Date: 20070707
  Serious: Yes (Hospitalization)
  Sender: FDA-Public Use
  Company Number: None

PATIENT
  Age: 60 Year
  Sex: Male
  Weight: 118.4 kg

DRUGS (2)
  1. WARFARIN SODIUM [Suspect]
     Indication: ATRIAL FLUTTER
     Dosage: 5MG   QD
  2. SIMVASTATIN [Suspect]
     Indication: HYPERLIPIDAEMIA
     Dosage: 80MG  QD    (DURATION:  YEARS)

REACTIONS (5)
  - ATRIAL FLUTTER [None]
  - DYSPNOEA [None]
  - FATIGUE [None]
  - INTERNATIONAL NORMALISED RATIO INCREASED [None]
  - TACHYCARDIA [None]
